FAERS Safety Report 18334863 (Version 1)
Quarter: 2020Q4

REPORT INFORMATION
  Report Type: Spontaneous
  Country: DE (occurrence: DE)
  Receive Date: 20201001
  Receipt Date: 20201001
  Transmission Date: 20210113
  Serious: Yes (Death, Hospitalization)
  Sender: FDA-Public Use
  Company Number: DE-TEVA-2020-DE-1832087

PATIENT
  Age: 71 Year
  Sex: Female
  Weight: 69 kg

DRUGS (8)
  1. COTRIM FORTE 800MG/160MG [Suspect]
     Active Substance: SULFAMETHOXAZOLE\TRIMETHOPRIM
     Dosage: 800|160 MG, PAUSE
     Route: 065
  2. COLECALCIFEROL (VITAMIN D) [Concomitant]
     Dosage: 20,000 IU/2 WEEKS, TUESDAYS
  3. ACICLOVIR [Concomitant]
     Active Substance: ACYCLOVIR
     Dosage: 800 MILLIGRAM DAILY;
  4. LEVOTHYROXIN-NATRIUM [Concomitant]
     Active Substance: LEVOTHYROXINE SODIUM
     Dosage: 125 MICROGRAM DAILY;
  5. KALIUM VERLA [Concomitant]
     Active Substance: POTASSIUM CITRATE
     Dosage: NK MG,
  6. MIRTAZAPIN [Suspect]
     Active Substance: MIRTAZAPINE
     Dosage: 15 MILLIGRAM DAILY;
  7. TORASEMID [Concomitant]
     Active Substance: TORSEMIDE
     Dosage: 10 MILLIGRAM DAILY;
  8. FLUCONAZOL [Concomitant]
     Active Substance: FLUCONAZOLE
     Dosage: 10 MILLIGRAM DAILY;

REACTIONS (3)
  - Fatigue [Unknown]
  - Localised infection [Unknown]
  - Liver function test abnormal [Unknown]
